FAERS Safety Report 8360549-6 (Version None)
Quarter: 2012Q2

REPORT INFORMATION
  Report Type: 
  Country: None (occurrence: None)
  Receive Date: 20120515
  Receipt Date: 20120509
  Transmission Date: 20120825
  Serious: Yes (Other)
  Sender: FDA-Public Use
  Company Number: PHEH2012US009797

PATIENT
  Sex: Male

DRUGS (22)
  1. DIGOXIN [Concomitant]
     Dosage: 25 MG, UNK
  2. XOPENEX [Concomitant]
     Dosage: 4 DF(1.25MG), QD
  3. POTASSIUM CHLORIDE [Concomitant]
     Dosage: 1 DF, QD
  4. FLONASE [Concomitant]
     Dosage: 1 DF, QD
  5. MAGNESIUM OXIDE [Concomitant]
     Dosage: 1 DF, QD
  6. ASTELIN [Concomitant]
     Dosage: 1 DF, QD
  7. ADVAIR DISKUS 100/50 [Concomitant]
     Dosage: UNK UKN, UNK
  8. FISH OIL [Concomitant]
     Dosage: 2 DF, QD
  9. NOVOLIN 70/30 [Concomitant]
     Dosage: 3 DF, QD
  10. ALBUTEROL [Concomitant]
     Dosage: UNK UKN, PRN
  11. COENZYME Q10 [Concomitant]
     Dosage: 1 DF, QD
  12. ZETIA [Concomitant]
     Dosage: 1 DF, QD
  13. MULTI-VITAMINS [Concomitant]
     Dosage: UNK UKN, QD
  14. LASIX [Concomitant]
     Dosage: 80 MG, UNK
  15. SPIRIVA [Concomitant]
  16. SIMVASTATIN [Concomitant]
     Dosage: 1 DF, QD
  17. CITRICAL [Concomitant]
     Dosage: UNK UKN, QD
  18. DIOVAN [Suspect]
     Indication: DIABETES MELLITUS
     Dosage: 80 MG, BID
  19. DIOVAN [Suspect]
     Dosage: 160 MG, BID
  20. DILTIAZEM [Concomitant]
     Dosage: 2 DF, QD
  21. LANTUS [Concomitant]
     Dosage: UNK UKN, QD
  22. METFORMIN HCL [Concomitant]
     Dosage: 1 DF, QD

REACTIONS (2)
  - CARDIAC FAILURE [None]
  - CHRONIC OBSTRUCTIVE PULMONARY DISEASE [None]
